FAERS Safety Report 9895183 (Version 1)
Quarter: 2014Q1

REPORT INFORMATION
  Report Type: Spontaneous
  Country: US (occurrence: US)
  Receive Date: 20140213
  Receipt Date: 20140213
  Transmission Date: 20141002
  Serious: Yes (Other)
  Sender: FDA-Public Use
  Company Number: US-BRISTOL-MYERS SQUIBB COMPANY-19228261

PATIENT
  Age: 42 Year
  Sex: Female
  Weight: 82.99 kg

DRUGS (2)
  1. ABATACEPT SUBQ INJECTION 125MG/ML [Suspect]
     Dosage: LAST INJECTION WAS IN JAN2013?1 DF=125 MG/ML
     Route: 058
  2. PREDNISONE [Concomitant]

REACTIONS (4)
  - Pneumonia [Unknown]
  - Oral infection [Unknown]
  - Gingival abscess [Unknown]
  - Bone loss [Unknown]
